FAERS Safety Report 23255466 (Version 2)
Quarter: 2024Q2

REPORT INFORMATION
  Report Type: Report from Study
  Country: JP (occurrence: JP)
  Receive Date: 20231203
  Receipt Date: 20240621
  Transmission Date: 20240715
  Serious: Yes (Hospitalization, Other)
  Sender: FDA-Public Use
  Company Number: JP-GLAXOSMITHKLINE-JP2023JPN164732

PATIENT

DRUGS (37)
  1. MEPOLIZUMAB [Suspect]
     Active Substance: MEPOLIZUMAB
     Indication: Eosinophilic granulomatosis with polyangiitis
     Dosage: 300 MG, Q4W
     Dates: start: 20190125, end: 20200701
  2. MEPOLIZUMAB [Suspect]
     Active Substance: MEPOLIZUMAB
     Dosage: 300 MG, Q6W
     Dates: start: 20200812, end: 20200812
  3. MEPOLIZUMAB [Suspect]
     Active Substance: MEPOLIZUMAB
     Dosage: 300 MG, Q4W
     Dates: start: 20200909
  4. SERETIDE [Suspect]
     Active Substance: FLUTICASONE PROPIONATE\SALMETEROL XINAFOATE
     Indication: Eosinophilic granulomatosis with polyangiitis
     Dosage: 500 ?G, QD
     Route: 055
     Dates: start: 20190704
  5. MEDROL [Suspect]
     Active Substance: METHYLPREDNISOLONE
     Indication: Eosinophilic granulomatosis with polyangiitis
     Dosage: 6 MG, QD
     Route: 048
     Dates: end: 20190204
  6. MEDROL [Suspect]
     Active Substance: METHYLPREDNISOLONE
     Dosage: 12 MG, QD
     Route: 048
     Dates: start: 20190205, end: 20190327
  7. MEDROL [Suspect]
     Active Substance: METHYLPREDNISOLONE
     Dosage: 8 MG, QD
     Route: 048
     Dates: start: 20190328, end: 20191204
  8. MEDROL [Suspect]
     Active Substance: METHYLPREDNISOLONE
     Dosage: 6 MG, QD
     Route: 048
     Dates: start: 20191205
  9. FLUTICASONE FUROATE\VILANTEROL TRIFENATATE [Concomitant]
     Active Substance: FLUTICASONE FUROATE\VILANTEROL TRIFENATATE
     Dosage: 200 ?G, QD
     Route: 055
     Dates: end: 20190226
  10. FLUTICASONE PROPIONATE\FORMOTEROL FUMARATE [Concomitant]
     Active Substance: FLUTICASONE PROPIONATE\FORMOTEROL FUMARATE
     Indication: Eosinophilic granulomatosis with polyangiitis
     Dosage: 250 ?G, QD
     Route: 055
     Dates: start: 20190227, end: 20190703
  11. PROGRAF [Concomitant]
     Active Substance: TACROLIMUS
     Dosage: 1 MG, QD
     Dates: start: 20190131, end: 20190208
  12. PROGRAF [Concomitant]
     Active Substance: TACROLIMUS
     Dosage: 3 MG, QD
     Dates: start: 20190209, end: 20190220
  13. PROGRAF [Concomitant]
     Active Substance: TACROLIMUS
     Dosage: 4 MG, QD
     Dates: start: 20190221, end: 20190424
  14. PROGRAF [Concomitant]
     Active Substance: TACROLIMUS
     Dosage: 2 MG, QD
     Dates: start: 20190425, end: 20190508
  15. LEVOTHYROXINE SODIUM [Concomitant]
     Active Substance: LEVOTHYROXINE SODIUM
     Indication: Hypothyroidism
     Dosage: UNK
  16. ZOLPIDEM [Concomitant]
     Active Substance: ZOLPIDEM TARTRATE
     Indication: Insomnia
     Dosage: UNK
  17. FLUNITRAZEPAM [Concomitant]
     Active Substance: FLUNITRAZEPAM
     Indication: Insomnia
     Dosage: UNK
  18. ETIZOLAM [Concomitant]
     Active Substance: ETIZOLAM
     Indication: Insomnia
     Dosage: UNK
  19. POTASSIUM CHLORIDE [Concomitant]
     Active Substance: POTASSIUM CHLORIDE
     Indication: Hypokalaemia
     Dosage: UNK
  20. MAGNESIUM OXIDE [Concomitant]
     Active Substance: MAGNESIUM OXIDE
     Indication: Constipation
     Dosage: UNK
  21. Shigmabitan [Concomitant]
     Indication: Hypovitaminosis
     Dosage: UNK
  22. OLOPATADINE [Concomitant]
     Active Substance: OLOPATADINE
     Indication: Asthma
     Dosage: UNK
  23. MOSAPRIDE CITRATE [Concomitant]
     Active Substance: MOSAPRIDE CITRATE
     Indication: Chronic gastritis
     Dosage: UNK
  24. DIBASIC CALCIUM PHOSPHATE [Concomitant]
     Indication: Osteoporosis
     Dosage: UNK
  25. LYRICA [Concomitant]
     Active Substance: PREGABALIN
     Indication: Neuralgia
     Dosage: UNK
  26. NEXIUM [Concomitant]
     Active Substance: ESOMEPRAZOLE MAGNESIUM
     Indication: Gastrooesophageal reflux disease
     Dosage: UNK
  27. TULOBUTEROL [Concomitant]
     Active Substance: TULOBUTEROL
     Indication: Asthma
     Dosage: UNK
  28. CARBOCYSTEINE [Concomitant]
     Active Substance: CARBOCYSTEINE
     Indication: Asthma
     Dosage: UNK
  29. AMITRIPTYLINE [Concomitant]
     Active Substance: AMITRIPTYLINE
     Indication: Neuralgia
     Dosage: UNK
  30. ITRACONAZOLE [Concomitant]
     Active Substance: ITRACONAZOLE
     Indication: Systemic mycosis
     Dosage: UNK
  31. MINODRONIC ACID [Concomitant]
     Active Substance: MINODRONIC ACID
     Indication: Osteoporosis
     Dosage: UNK
  32. BISOPROLOL FUMARATE [Concomitant]
     Active Substance: BISOPROLOL FUMARATE
     Indication: Cardiac failure chronic
     Dosage: UNK
  33. POTASSIUM ASPARTATE [Concomitant]
     Active Substance: POTASSIUM ASPARTATE
     Indication: Hypokalaemia
     Dosage: UNK
  34. SULFAMETHOXAZOLE\TRIMETHOPRIM [Concomitant]
     Active Substance: SULFAMETHOXAZOLE\TRIMETHOPRIM
     Indication: Antifungal prophylaxis
     Dosage: UNK
  35. HYALURONATE SODIUM [Concomitant]
     Active Substance: HYALURONATE SODIUM
     Indication: Dry eye
     Dosage: UNK
  36. SODIUM GUALENATE MONOHYDRATE [Concomitant]
     Active Substance: SODIUM GUALENATE MONOHYDRATE
     Indication: Pharyngitis
     Dosage: UNK
  37. SODIUM GUALENATE MONOHYDRATE [Concomitant]
     Active Substance: SODIUM GUALENATE MONOHYDRATE
     Indication: Stomatitis

REACTIONS (6)
  - Pneumonia [Recovered/Resolved]
  - Asthma [Recovered/Resolved]
  - Pneumonia [Recovered/Resolved]
  - Pneumonia [Recovered/Resolved]
  - Inappropriate schedule of product administration [Unknown]
  - Off label use [Unknown]

NARRATIVE: CASE EVENT DATE: 20190205
